FAERS Safety Report 13031654 (Version 1)
Quarter: 2016Q4

REPORT INFORMATION
  Report Type: Spontaneous
  Country: TH (occurrence: TH)
  Receive Date: 20161215
  Receipt Date: 20161215
  Transmission Date: 20170207
  Serious: Yes (Hospitalization)
  Sender: FDA-Public Use
  Company Number: TH-SA-2016SA223423

PATIENT
  Age: 79 Year
  Sex: Female

DRUGS (1)
  1. EPINEPHRINE. [Suspect]
     Active Substance: EPINEPHRINE
     Indication: ANAPHYLACTIC SHOCK
     Route: 065

REACTIONS (13)
  - Pulmonary oedema [Recovered/Resolved]
  - Respiratory failure [Recovered/Resolved]
  - Dyspnoea [Recovered/Resolved]
  - Condition aggravated [Recovered/Resolved]
  - Acute respiratory distress syndrome [Recovered/Resolved]
  - Stress cardiomyopathy [Recovered/Resolved]
  - Systolic dysfunction [Recovered/Resolved]
  - Cardiomegaly [Recovered/Resolved]
  - Chest X-ray abnormal [Recovered/Resolved]
  - Anaphylactic shock [Recovered/Resolved]
  - Drug ineffective [Unknown]
  - Tachycardia [Recovered/Resolved]
  - Electrocardiogram ST segment elevation [Recovered/Resolved]
